FAERS Safety Report 9323400 (Version 2)
Quarter: 2013Q3

REPORT INFORMATION
  Report Type: Report from Study
  Country: TW (occurrence: TW)
  Receive Date: 20130603
  Receipt Date: 20130705
  Transmission Date: 20140515
  Serious: Yes (Other)
  Sender: FDA-Public Use
  Company Number: TW-GENZYME-CERZ-1003025

PATIENT
  Age: 58 Year
  Sex: Female
  Weight: 58 kg

DRUGS (42)
  1. CEREZYME [Suspect]
     Indication: GAUCHER^S DISEASE
     Dosage: 60 U/KG, Q2W
     Route: 042
     Dates: start: 20030528
  2. NEOSTIGMINE [Concomitant]
     Indication: PRODUCT USED FOR UNKNOWN INDICATION
     Dosage: 1 GTT, BID
     Route: 047
     Dates: start: 20060510
  3. VOLTAN SR [Concomitant]
     Indication: PRODUCT USED FOR UNKNOWN INDICATION
     Dosage: 1 DF, BID
     Route: 048
     Dates: start: 20061020, end: 20061020
  4. VOLTAN SR [Concomitant]
     Dosage: 1 DF, QD
     Route: 048
     Dates: start: 20071003, end: 20071003
  5. VOLTAN SR [Concomitant]
     Dosage: 1 DF, BID
     Route: 048
     Dates: start: 20080116, end: 20080116
  6. VOLTAN SR [Concomitant]
     Dosage: 1 DF, QD
     Route: 048
     Dates: start: 20090923, end: 20090923
  7. VOLTAN SR [Concomitant]
     Dosage: UNK
     Route: 048
  8. TINTEN [Concomitant]
     Indication: PRODUCT USED FOR UNKNOWN INDICATION
     Dosage: 1 DF, PRN
     Route: 048
     Dates: start: 20091021, end: 20120917
  9. EBUTOL [Concomitant]
     Indication: PRODUCT USED FOR UNKNOWN INDICATION
     Dosage: 2 DF, QD
     Route: 048
     Dates: start: 20120918, end: 20121030
  10. PYRAZINAMIDE [Concomitant]
     Indication: PRODUCT USED FOR UNKNOWN INDICATION
     Dosage: 2 DF, QD
     Route: 048
     Dates: start: 20120918, end: 20121030
  11. RIFINAH [Concomitant]
     Indication: PRODUCT USED FOR UNKNOWN INDICATION
     Dosage: 2 DF, UNK
     Route: 048
     Dates: start: 20120918
  12. LENDORMIN [Concomitant]
     Indication: PRODUCT USED FOR UNKNOWN INDICATION
     Dosage: 1 DF, UNK
     Route: 048
     Dates: start: 20090128, end: 20091021
  13. SINEMET [Concomitant]
     Indication: PRODUCT USED FOR UNKNOWN INDICATION
     Dosage: 1 DF, TID
     Route: 048
     Dates: start: 20090128, end: 20090128
  14. SINEMET [Concomitant]
     Dosage: 1.5 DF, TID
     Route: 048
     Dates: start: 20090211, end: 20090211
  15. SINEMET [Concomitant]
     Dosage: 1 DF, TID
     Route: 048
     Dates: start: 20090408, end: 20090808
  16. SINEMET [Concomitant]
     Dosage: 1.5 DF, TID
     Route: 048
     Dates: start: 20090701, end: 20090701
  17. SINEMET [Concomitant]
     Dosage: 1.5 DF, QID
     Route: 048
     Dates: start: 20120502, end: 20120502
  18. SINEMET [Concomitant]
     Dosage: UNK
     Route: 048
     Dates: end: 20120530
  19. PK-MERZ [Concomitant]
     Indication: PRODUCT USED FOR UNKNOWN INDICATION
     Dosage: 2 DF, BID
     Route: 048
     Dates: start: 20110209, end: 20110209
  20. PK-MERZ [Concomitant]
     Dosage: 1 DF, TID
     Route: 048
     Dates: start: 20110528, end: 20110528
  21. PK-MERZ [Concomitant]
     Dosage: 2 DF, BID
     Route: 048
     Dates: start: 20111115, end: 20111115
  22. PK-MERZ [Concomitant]
     Dosage: UNK
     Route: 048
  23. MIRAPEX [Concomitant]
     Indication: PRODUCT USED FOR UNKNOWN INDICATION
     Dosage: 1 DF, TID
     Route: 048
     Dates: start: 20090812, end: 20090812
  24. MIRAPEX [Concomitant]
     Dosage: 2 DF, UNK
     Route: 048
     Dates: start: 20090923, end: 20090923
  25. MIRAPEX [Concomitant]
     Dosage: 3 DF, UNK
     Route: 048
     Dates: start: 20091216, end: 20091216
  26. MIRAPEX [Concomitant]
     Dosage: 1 DF, UNK
     Route: 048
     Dates: start: 20110528, end: 20110528
  27. MIRAPEX [Concomitant]
     Dosage: 1 DF, QID
     Route: 048
     Dates: start: 20120502, end: 20120502
  28. MIRAPEX [Concomitant]
     Dosage: 2 DF, TID
     Route: 048
     Dates: start: 20120502, end: 20120502
  29. MIRAPEX [Concomitant]
     Dosage: UNK
     Route: 048
  30. MIRAPEX [Concomitant]
     Indication: PRODUCT USED FOR UNKNOWN INDICATION
     Dosage: UNK
     Route: 048
     Dates: start: 20090812, end: 20090812
  31. MIRAPEX [Concomitant]
     Dosage: 1 DF, QD
     Route: 048
     Dates: start: 20120725, end: 20120725
  32. MIRAPEX [Concomitant]
     Dosage: 1 DF, BID
     Route: 048
     Dates: start: 20120822, end: 20120822
  33. MIRAPEX [Concomitant]
     Dosage: UNK
     Route: 048
  34. MIRAPEX [Concomitant]
     Indication: PRODUCT USED FOR UNKNOWN INDICATION
     Dosage: UNK
     Route: 048
     Dates: start: 20090812, end: 20090812
  35. MIRAPEX [Concomitant]
     Dosage: 1 DF, QD
     Route: 048
     Dates: start: 20121017, end: 20121017
  36. MIRAPEX [Concomitant]
     Dosage: UNK
     Route: 048
  37. STILNOX [Concomitant]
     Indication: PRODUCT USED FOR UNKNOWN INDICATION
     Dosage: 0.5 DF, UNK
     Route: 048
     Dates: start: 20111115, end: 20111115
  38. STILNOX [Concomitant]
     Dosage: 1 DF, UNK
     Route: 048
     Dates: start: 20121017, end: 20121017
  39. STILNOX [Concomitant]
     Dosage: UNK
     Route: 048
  40. STILNOX [Concomitant]
     Indication: PRODUCT USED FOR UNKNOWN INDICATION
     Dosage: UNK
     Route: 048
     Dates: start: 20111115, end: 20111115
  41. STILNOX [Concomitant]
     Dosage: 1 DF, UNK
     Route: 048
     Dates: start: 20120208, end: 20120208
  42. STILNOX [Concomitant]
     Dosage: UNK
     Route: 048

REACTIONS (2)
  - Pleural effusion [Recovered/Resolved]
  - Tuberculous pleurisy [Recovered/Resolved]
